FAERS Safety Report 7492808-3 (Version None)
Quarter: 2011Q2

REPORT INFORMATION
  Report Type: 
  Country: None (occurrence: None)
  Receive Date: 20110512
  Receipt Date: 20110426
  Transmission Date: 20111010
  Serious: Yes (Hospitalization)
  Sender: FDA-Public Use
  Company Number: DSA_45476_2011

PATIENT
  Sex: Female

DRUGS (2)
  1. ATIVAN [Suspect]
     Indication: PRODUCT USED FOR UNKNOWN INDICATION
     Dosage: HALF OF A 1 MG, TABLET BID
     Dates: start: 20000101
  2. LIPITOR [Suspect]
     Indication: PRODUCT USED FOR UNKNOWN INDICATION
     Dosage: DF
     Dates: start: 20010101, end: 20110404

REACTIONS (5)
  - HEADACHE [None]
  - PAIN [None]
  - CHEST PAIN [None]
  - GINGIVAL BLISTER [None]
  - MUSCULAR WEAKNESS [None]
